FAERS Safety Report 6633274-7 (Version None)
Quarter: 2010Q1

REPORT INFORMATION
  Report Type: 
  Country: None (occurrence: None)
  Receive Date: 20100312
  Receipt Date: 20100302
  Transmission Date: 20100710
  Serious: Yes (Other)
  Sender: FDA-Public Use
  Company Number: US-PFIZER INC-2010027856

PATIENT
  Sex: Female
  Weight: 58 kg

DRUGS (4)
  1. ZITHROMAX [Suspect]
     Indication: TOOTH INFECTION
     Dosage: UNK
     Route: 048
     Dates: start: 20091101, end: 20090101
  2. CIPROFLOXACIN [Suspect]
     Indication: TOOTH INFECTION
     Dosage: UNK
     Route: 048
     Dates: start: 20091201, end: 20100101
  3. AZITHROMYCIN [Suspect]
     Indication: TOOTH INFECTION
     Dosage: 500 MG, DAILY
     Route: 048
     Dates: start: 20100228, end: 20100228
  4. SUDAFED 12 HOUR [Concomitant]
     Dosage: UNK

REACTIONS (9)
  - DIZZINESS [None]
  - DYSPNOEA [None]
  - NAUSEA [None]
  - RASH [None]
  - SCRATCH [None]
  - SINUS DISORDER [None]
  - SWELLING [None]
  - THROAT TIGHTNESS [None]
  - UPPER RESPIRATORY TRACT INFECTION [None]
